FAERS Safety Report 5669083-5 (Version None)
Quarter: 2008Q1

REPORT INFORMATION
  Report Type: 
  Country: None (occurrence: None)
  Receive Date: 20080317
  Receipt Date: 20080311
  Transmission Date: 20080703
  Serious: Yes (Hospitalization)
  Sender: FDA-Public Use
  Company Number: US-JNJFOC-20080301695

PATIENT
  Age: 43 Year
  Weight: 70.31 kg

DRUGS (3)
  1. TYLENOL COLD MULTI-SYMPTOM DAYTIME [Suspect]
     Indication: INFLUENZA
     Route: 048
  2. TYLENOL [Suspect]
     Indication: INSOMNIA
  3. CYMBALTA [Concomitant]
     Indication: DEPRESSION

REACTIONS (1)
  - HEPATOCELLULAR INJURY [None]
